FAERS Safety Report 5489259-X (Version None)
Quarter: 2007Q4

REPORT INFORMATION
  Report Type: 
  Country: None (occurrence: None)
  Receive Date: 20071018
  Receipt Date: 20071003
  Transmission Date: 20080405
  Serious: Yes (Hospitalization)
  Sender: FDA-Public Use
  Company Number: JP-BAYER-200715672GDS

PATIENT
  Age: 81 Year
  Sex: Male

DRUGS (5)
  1. BUFFERIN [Suspect]
     Indication: DRUG USE FOR UNKNOWN INDICATION
     Route: 048
     Dates: start: 20011101
  2. ACECOL [Concomitant]
     Indication: DRUG USE FOR UNKNOWN INDICATION
     Route: 048
     Dates: start: 20011101
  3. LASIX [Concomitant]
     Indication: DRUG USE FOR UNKNOWN INDICATION
     Route: 048
     Dates: start: 20011101
  4. LENDORMIN [Concomitant]
     Indication: DRUG USE FOR UNKNOWN INDICATION
     Route: 048
     Dates: start: 20011101
  5. FRANDOL [Concomitant]
     Indication: DRUG USE FOR UNKNOWN INDICATION
     Route: 061
     Dates: start: 20011101

REACTIONS (7)
  - BLISTER [None]
  - DRY SKIN [None]
  - ERYTHEMA [None]
  - LIP HAEMORRHAGE [None]
  - SKIN EXFOLIATION [None]
  - SKIN OEDEMA [None]
  - STEVENS-JOHNSON SYNDROME [None]
